FAERS Safety Report 6538106-3 (Version None)
Quarter: 2010Q1

REPORT INFORMATION
  Report Type: 
  Country: None (occurrence: None)
  Receive Date: 20100111
  Receipt Date: 20091229
  Transmission Date: 20100710
  Serious: Yes (Other)
  Sender: FDA-Public Use
  Company Number: 09NZ001235

PATIENT
  Age: 58 Year
  Sex: Female

DRUGS (11)
  1. PEXEVA [Suspect]
     Indication: DRUG USE FOR UNKNOWN INDICATION
     Dosage: 60 MG, QD OVER ONE HOUR
  2. METHYLENE BLUE (METHYLTHIONINIUM CHLORIDE) [Suspect]
     Indication: DRUG USE FOR UNKNOWN INDICATION
     Dosage: 5 MG/KG OVER ONE HOUR
  3. MIDAZOLAM HCL [Concomitant]
  4. OMEPRAZOLE (OMEPRAZOLE) TABLET [Concomitant]
  5. FENTANYL-100 [Concomitant]
  6. PROPOFOL [Concomitant]
  7. ROCURONIUM BROMIDE [Concomitant]
  8. HYDROCORTISONE [Concomitant]
  9. ATROPINE [Concomitant]
  10. NEOSTIGMINE (NEOSTIGMINE) [Concomitant]
  11. SIMVASTATIN [Concomitant]

REACTIONS (8)
  - ANXIETY [None]
  - DISORIENTATION [None]
  - DRUG INTERACTION [None]
  - DYSTONIA [None]
  - FEAR [None]
  - PROCEDURAL HYPOTENSION [None]
  - SEROTONIN SYNDROME [None]
  - UNRESPONSIVE TO STIMULI [None]
